FAERS Safety Report 20745286 (Version 1)
Quarter: 2022Q2

REPORT INFORMATION
  Report Type: Spontaneous
  Country: US (occurrence: None)
  Receive Date: 20220422
  Receipt Date: 20220422
  Transmission Date: 20220720
  Serious: Yes (Congenital Anomaly)
  Sender: FDA-Public Use
  Company Number: None

PATIENT
  Age: 51 Year
  Sex: Male
  Weight: 78.75 kg

DRUGS (10)
  1. AVENTYL [Suspect]
     Active Substance: NORTRIPTYLINE HYDROCHLORIDE
     Indication: Anxiety
     Route: 048
     Dates: start: 19700611, end: 19700811
  2. Seroqual [Concomitant]
  3. DEPAKOTE [Concomitant]
     Active Substance: DIVALPROEX SODIUM
  4. GABAPENTIN [Concomitant]
     Active Substance: GABAPENTIN
  5. propananol [Concomitant]
  6. ABILIFY [Concomitant]
     Active Substance: ARIPIPRAZOLE
  7. ATIVAN [Concomitant]
     Active Substance: LORAZEPAM
  8. LIPITOR [Concomitant]
     Active Substance: ATORVASTATIN CALCIUM
  9. OXYBUTYNIN [Concomitant]
     Active Substance: OXYBUTYNIN
  10. Energy supplement with caffeine [Concomitant]

REACTIONS (13)
  - Maternal drugs affecting foetus [None]
  - Mental disorder [None]
  - Depression [None]
  - Anxiety [None]
  - Social avoidant behaviour [None]
  - Emotional disorder [None]
  - Educational problem [None]
  - Suicidal ideation [None]
  - Schizoaffective disorder [None]
  - Obsessive-compulsive disorder [None]
  - Suicidal ideation [None]
  - Alcohol use [None]
  - Learning disability [None]

NARRATIVE: CASE EVENT DATE: 19700811
